FAERS Safety Report 23879889 (Version 1)
Quarter: 2024Q2

REPORT INFORMATION
  Report Type: Spontaneous
  Country: US (occurrence: US)
  Receive Date: 20240521
  Receipt Date: 20240521
  Transmission Date: 20240716
  Serious: No
  Sender: FDA-Public Use
  Company Number: US-HORIZON THERAPEUTICS-HZN-2024-002415

PATIENT

DRUGS (1)
  1. PENNSAID [Suspect]
     Active Substance: DICLOFENAC SODIUM
     Indication: Rotator cuff syndrome
     Dosage: FIRST DOSE
     Route: 061
     Dates: start: 2016

REACTIONS (2)
  - Application site rash [Unknown]
  - Product administered at inappropriate site [Unknown]
